FAERS Safety Report 5151733-3 (Version None)
Quarter: 2006Q4

REPORT INFORMATION
  Report Type: 
  Country: None (occurrence: None)
  Receive Date: 20061109
  Receipt Date: 20061026
  Transmission Date: 20070319
  Serious: Yes (Hospitalization, Other)
  Sender: FDA-Public Use
  Company Number: 2006091880

PATIENT
  Age: 63 Year
  Sex: Female

DRUGS (1)
  1. BEXTRA [Suspect]
     Dosage: (10MG)
     Dates: start: 20030701, end: 20031001

REACTIONS (1)
  - CEREBROVASCULAR ACCIDENT [None]
